FAERS Safety Report 8311217-8 (Version None)
Quarter: 2012Q2

REPORT INFORMATION
  Report Type: 
  Country: None (occurrence: None)
  Receive Date: 20120425
  Receipt Date: 20120416
  Transmission Date: 20120825
  Serious: Yes (Hospitalization, Other)
  Sender: FDA-Public Use
  Company Number: US-ASTRAZENECA-2011SE47042

PATIENT
  Age: 48 Year
  Sex: Male

DRUGS (8)
  1. NEXIUM [Suspect]
     Route: 048
  2. MORPHINE [Concomitant]
  3. MEDICATION [Concomitant]
     Indication: NAUSEA
  4. GLYBURIDE [Concomitant]
  5. SEROQUEL [Suspect]
     Indication: BIPOLAR DISORDER
     Route: 048
  6. ROXYCODONE [Concomitant]
  7. METFORMIN HCL [Concomitant]
  8. SEROQUEL [Suspect]
     Route: 048

REACTIONS (5)
  - INTERVERTEBRAL DISC PROTRUSION [None]
  - DRUG DOSE OMISSION [None]
  - ACCIDENT AT WORK [None]
  - MYOCARDIAL INFARCTION [None]
  - DIABETES MELLITUS [None]
